FAERS Safety Report 4409940-0 (Version None)
Quarter: 2004Q3

REPORT INFORMATION
  Report Type: 
  Country: None (occurrence: None)
  Receive Date: 20040723
  Receipt Date: 20040713
  Transmission Date: 20050211
  Serious: Yes (Life-Threatening, Hospitalization)
  Sender: FDA-Public Use
  Company Number: 2004RL000075

PATIENT
  Age: 28 Year
  Sex: Male

DRUGS (3)
  1. PROPAFENONE HYDROCHLORIDE (PROPAFENONE HYDROCHLORIDE) (150 MG) [Suspect]
     Indication: DRUG USE FOR UNKNOWN INDICATION
     Dosage: 4500 MG;X1;PO
     Route: 048
  2. VERAPAMIL [Concomitant]
  3. BROMAZEPAMUM [Concomitant]

REACTIONS (46)
  - ACIDOSIS [None]
  - ALANINE AMINOTRANSFERASE INCREASED [None]
  - ALCOHOLISM [None]
  - ARRHYTHMIA SUPRAVENTRICULAR [None]
  - ASPARTATE AMINOTRANSFERASE INCREASED [None]
  - BASOPHILIA [None]
  - BLOOD AMYLASE INCREASED [None]
  - BLOOD CREATINE PHOSPHOKINASE INCREASED [None]
  - BLOOD CREATININE INCREASED [None]
  - CENTRAL NERVOUS SYSTEM LESION [None]
  - COMA [None]
  - CONDITION AGGRAVATED [None]
  - CYANOSIS [None]
  - ELECTROCARDIOGRAM PR PROLONGATION [None]
  - ELECTROCARDIOGRAM QRS COMPLEX PROLONGED [None]
  - EOSINOPHILIA [None]
  - EYE MOVEMENT DISORDER [None]
  - GRAND MAL CONVULSION [None]
  - HYPERCAPNIA [None]
  - HYPERHIDROSIS [None]
  - HYPOTENSION [None]
  - HYPOVENTILATION [None]
  - HYPOXIA [None]
  - INTENTIONAL OVERDOSE [None]
  - INTESTINAL HYPOMOTILITY [None]
  - LEUKOCYTOSIS [None]
  - LYMPHOPENIA [None]
  - MUSCULAR WEAKNESS [None]
  - MYDRIASIS [None]
  - MYOCLONUS [None]
  - MYOGLOBIN BLOOD INCREASED [None]
  - NEUROMYOPATHY [None]
  - NODAL ARRHYTHMIA [None]
  - OPISTHOTONUS [None]
  - PALLOR [None]
  - PUPILLARY REFLEX IMPAIRED [None]
  - RESPIRATORY DEPRESSION [None]
  - RETROGRADE AMNESIA [None]
  - SINOATRIAL BLOCK [None]
  - SOMNOLENCE [None]
  - SUICIDE ATTEMPT [None]
  - VENTRICULAR ARRHYTHMIA [None]
  - VENTRICULAR ASYSTOLE [None]
  - VENTRICULAR EXTRASYSTOLES [None]
  - VENTRICULAR FIBRILLATION [None]
  - VENTRICULAR TACHYCARDIA [None]
